FAERS Safety Report 23650164 (Version 1)
Quarter: 2024Q1

REPORT INFORMATION
  Report Type: Spontaneous
  Country: CN (occurrence: CN)
  Receive Date: 20240319
  Receipt Date: 20240319
  Transmission Date: 20240409
  Serious: Yes (Hospitalization)
  Sender: FDA-Public Use
  Company Number: CN-BEIGENE-BGN-2024-003901

PATIENT

DRUGS (3)
  1. TISLELIZUMAB [Suspect]
     Active Substance: TISLELIZUMAB
     Indication: Malignant palate neoplasm
     Dosage: 200 MILLIGRAM
     Route: 041
     Dates: start: 20240304
  2. CISPLATIN [Suspect]
     Active Substance: CISPLATIN
     Indication: Malignant palate neoplasm
     Dosage: 65 MILLIGRAM
     Route: 041
     Dates: start: 20240304
  3. PACLITAXEL [Suspect]
     Active Substance: PACLITAXEL
     Indication: Malignant palate neoplasm
     Dosage: 0.4 GRAM
     Route: 041
     Dates: start: 20240304

REACTIONS (2)
  - White blood cell count decreased [Recovering/Resolving]
  - Transaminases increased [Recovering/Resolving]

NARRATIVE: CASE EVENT DATE: 20240307
